FAERS Safety Report 13089082 (Version 1)
Quarter: 2017Q1

REPORT INFORMATION
  Report Type: Spontaneous
  Country: US (occurrence: US)
  Receive Date: 20170104
  Receipt Date: 20170104
  Transmission Date: 20170428
  Serious: No
  Sender: FDA-Public Use
  Company Number: None

PATIENT
  Age: 45 Year
  Sex: Male
  Weight: 112.5 kg

DRUGS (1)
  1. TRESIBA [Suspect]
     Active Substance: INSULIN DEGLUDEC
     Indication: DIABETES MELLITUS
     Dosage: ?          QUANTITY:15 INJECTION(S);?
     Route: 058
     Dates: start: 20160114, end: 20161202

REACTIONS (3)
  - Hypersensitivity [None]
  - Rash [None]
  - Blood glucose increased [None]

NARRATIVE: CASE EVENT DATE: 20161014
